FAERS Safety Report 15836183 (Version 1)
Quarter: 2019Q1

REPORT INFORMATION
  Report Type: Spontaneous
  Country: US (occurrence: US)
  Receive Date: 20190117
  Receipt Date: 20190117
  Transmission Date: 20190417
  Serious: Yes (Death)
  Sender: FDA-Public Use
  Company Number: US-INSYS THERAPEUTICS, INC-INS201901-000305

PATIENT
  Age: 37 Year
  Sex: Male

DRUGS (9)
  1. HEROIN [Suspect]
     Active Substance: DIAMORPHINE
     Route: 051
     Dates: start: 2017
  2. FENTANYL. [Suspect]
     Active Substance: FENTANYL
     Indication: PRODUCT USED FOR UNKNOWN INDICATION
     Dates: start: 2017
  3. MORPHINE [Suspect]
     Active Substance: MORPHINE
     Dates: start: 2017
  4. 11-HYDROXY-DELTA-9-TETRAHYDROCANNABINOL [Suspect]
     Active Substance: 11-HYDROXY-.DELTA.9-TETRAHYDROCANNABINOL
     Dates: start: 2017
  5. NORFENTANYL [Suspect]
     Active Substance: NORFENTANYL
     Dates: start: 2017
  6. DELTA-9-THC [Suspect]
     Active Substance: DRONABINOL
     Dates: start: 2017
  7. MARIJUANA [Suspect]
     Active Substance: CANNABIS SATIVA SUBSP. INDICA TOP
     Route: 051
     Dates: start: 2017
  8. CODEINE [Suspect]
     Active Substance: CODEINE
     Dates: start: 2017
  9. ALPRAZOLAM. [Suspect]
     Active Substance: ALPRAZOLAM
     Route: 051
     Dates: start: 2017

REACTIONS (1)
  - Drug abuse [Fatal]

NARRATIVE: CASE EVENT DATE: 2017
